FAERS Safety Report 13852015 (Version 2)
Quarter: 2017Q3

REPORT INFORMATION
  Report Type: Spontaneous
  Country: US (occurrence: US)
  Receive Date: 20170810
  Receipt Date: 20170829
  Transmission Date: 20171127
  Serious: Yes (Other)
  Sender: FDA-Public Use
  Company Number: US-PFIZER INC-2017338977

PATIENT
  Age: 79 Year
  Sex: Male

DRUGS (1)
  1. METHOTREXATE SODIUM. [Suspect]
     Active Substance: METHOTREXATE SODIUM
     Indication: RHEUMATOID ARTHRITIS
     Dosage: UNK

REACTIONS (10)
  - Chest pain [Unknown]
  - Ankylosing spondylitis [Unknown]
  - Pleuritic pain [Unknown]
  - Palpitations [Unknown]
  - Dyspnoea [Unknown]
  - Osteoporosis [Unknown]
  - Bronchiectasis [Unknown]
  - Pleural thickening [Unknown]
  - Arteriosclerosis coronary artery [Unknown]
  - Pleural calcification [Unknown]
